FAERS Safety Report 6303929-2 (Version None)
Quarter: 2009Q3

REPORT INFORMATION
  Report Type: 
  Country: None (occurrence: None)
  Receive Date: 20090810
  Receipt Date: 20090810
  Transmission Date: 20100115
  Serious: Yes (Hospitalization)
  Sender: FDA-Public Use
  Company Number: None

PATIENT
  Age: 78 Year
  Sex: Female
  Weight: 57 kg

DRUGS (11)
  1. DIGOXIN [Suspect]
     Indication: ATRIAL FIBRILLATION
     Dosage: DIGOXIN 125 MCG DAILY PO, PRIOR TO ADMISSION
     Route: 048
  2. AMLODIPINE [Concomitant]
  3. CARVEDILOL [Concomitant]
  4. LEVOTHYROXINE [Concomitant]
  5. NITROGLYCERIN [Concomitant]
  6. MULTI-VITAMIN [Concomitant]
  7. PANTOPRAZOLE SODIUM [Concomitant]
  8. ASPIRIN [Concomitant]
  9. WARFARIN [Concomitant]
  10. ATORVASTATIN CALCIUM [Concomitant]
  11. NYSTATIN [Concomitant]

REACTIONS (5)
  - CARDIOACTIVE DRUG LEVEL INCREASED [None]
  - CONFUSIONAL STATE [None]
  - ELECTROLYTE IMBALANCE [None]
  - URINARY TRACT INFECTION [None]
  - WHITE BLOOD CELL COUNT INCREASED [None]
